FAERS Safety Report 23688474 (Version 1)
Quarter: 2024Q1

REPORT INFORMATION
  Report Type: Spontaneous
  Country: US (occurrence: None)
  Receive Date: 20240329
  Receipt Date: 20240329
  Transmission Date: 20240410
  Serious: Yes (Other)
  Sender: FDA-Public Use
  Company Number: US-ROCHE-3532361

PATIENT
  Sex: Female

DRUGS (1)
  1. PULMOZYME [Suspect]
     Active Substance: DORNASE ALFA
     Indication: Bronchitis
     Dosage: PULMOZYME SOL 1MG/ML
     Route: 055

REACTIONS (2)
  - Off label use [Unknown]
  - Cerebral palsy [Unknown]
